FAERS Safety Report 4829133-2 (Version None)
Quarter: 2005Q4

REPORT INFORMATION
  Report Type: 
  Country: None (occurrence: None)
  Receive Date: 20051027
  Receipt Date: 20050408
  Transmission Date: 20060501
  Serious: Yes (Other)
  Sender: FDA-Public Use
  Company Number: USA-2004-0012776

PATIENT
  Age: 62 Year
  Sex: Male
  Weight: 90.7 kg

DRUGS (12)
  1. SPECTRACEF [Suspect]
     Indication: BRONCHITIS ACUTE
     Dosage: 1 TABLET, BID, UNKNOWN
     Route: 065
     Dates: start: 20051224
  2. DILANTIN [Concomitant]
  3. VERAPAMIL [Concomitant]
  4. BUSPAR [Concomitant]
  5. CARAFATE [Concomitant]
  6. PROCARDIA [Concomitant]
  7. ATROVENT [Concomitant]
  8. ALBUTEROL [Concomitant]
  9. VIAGRA [Concomitant]
  10. FIORINAL [Concomitant]
  11. LESCOL XL [Concomitant]
  12. MYSOLINE [Concomitant]

REACTIONS (1)
  - CLOSTRIDIAL INFECTION [None]
